FAERS Safety Report 21165451 (Version 1)
Quarter: 2022Q3

REPORT INFORMATION
  Report Type: Spontaneous
  Country: US (occurrence: US)
  Receive Date: 20220803
  Receipt Date: 20220803
  Transmission Date: 20221027
  Serious: Yes (Other)
  Sender: FDA-Public Use
  Company Number: US-MYLANLABS-2022M1082865

PATIENT
  Age: 58 Year
  Sex: Female

DRUGS (13)
  1. CISPLATIN [Suspect]
     Active Substance: CISPLATIN
     Indication: Ovarian epithelial cancer
     Dosage: 100 MILLIGRAM/SQ. METER, Q3W (6 CYCLES)
     Route: 033
  2. PACLITAXEL [Suspect]
     Active Substance: PACLITAXEL
     Indication: Ovarian epithelial cancer
     Dosage: 60 MILLIGRAM/SQ. METER, Q3W (6 CYCLES(
     Route: 065
  3. PACLITAXEL [Suspect]
     Active Substance: PACLITAXEL
     Dosage: 80 MILLIGRAM/SQ. METER
     Route: 065
  4. CARBOPLATIN [Suspect]
     Active Substance: CARBOPLATIN
     Indication: Ovarian epithelial cancer
     Dosage: UNK, COMPLETED 6 CYCLES
     Route: 065
     Dates: end: 2015
  5. CARBOPLATIN [Suspect]
     Active Substance: CARBOPLATIN
     Dosage: UNK
     Route: 065
     Dates: start: 2019
  6. DOXORUBICIN [Suspect]
     Active Substance: DOXORUBICIN
     Indication: Ovarian epithelial cancer
     Dosage: 30 MILLIGRAM/SQ. METER (COMPLETED 6 CYCLES)
     Route: 065
     Dates: end: 2015
  7. CYCLOPHOSPHAMIDE [Suspect]
     Active Substance: CYCLOPHOSPHAMIDE
     Indication: Ovarian epithelial cancer
     Dosage: 150 MILLIGRAM
     Route: 048
     Dates: start: 201511
  8. CYCLOPHOSPHAMIDE [Suspect]
     Active Substance: CYCLOPHOSPHAMIDE
     Indication: Ovarian epithelial cancer
     Dosage: 50 MILLIGRAM
     Route: 065
     Dates: start: 201603
  9. NIRAPARIB [Suspect]
     Active Substance: NIRAPARIB
     Indication: Ovarian epithelial cancer
     Dosage: 300 MILLIGRAM, QD (2 CYCLES)
     Route: 065
  10. BEVACIZUMAB [Suspect]
     Active Substance: BEVACIZUMAB
     Indication: Ovarian epithelial cancer
     Dosage: 10 MILLIGRAM/KILOGRAM (RECEIVED 2 CYCLES)
     Route: 065
     Dates: start: 201603
  11. BEVACIZUMAB [Suspect]
     Active Substance: BEVACIZUMAB
     Dosage: 10 MILLIGRAM/KILOGRAM (COMPLETED 6 CYCLES)
     Route: 065
     Dates: end: 201612
  12. BEVACIZUMAB [Suspect]
     Active Substance: BEVACIZUMAB
     Dosage: 15 MILLIGRAM/KILOGRAM
     Route: 065
     Dates: start: 2019
  13. PEMBROLIZUMAB [Suspect]
     Active Substance: PEMBROLIZUMAB
     Indication: Ovarian epithelial cancer
     Dosage: 200 MILLIGRAM
     Route: 042
     Dates: start: 2017

REACTIONS (2)
  - Treatment failure [Unknown]
  - Neoplasm progression [Unknown]
